FAERS Safety Report 5833309-5 (Version None)
Quarter: 2008Q3

REPORT INFORMATION
  Report Type: 
  Country: None (occurrence: None)
  Receive Date: 20080801
  Receipt Date: 20080723
  Transmission Date: 20090109
  Serious: Yes (Life-Threatening, Other)
  Sender: FDA-Public Use
  Company Number: 2008AP001757

PATIENT
  Age: 58 Year
  Sex: Male

DRUGS (1)
  1. CLOPIDOGREL [Suspect]
     Indication: CORONARY ARTERY DISEASE
     Dosage: 75 MG; QD; PO
     Route: 048
     Dates: start: 20060901, end: 20070201

REACTIONS (10)
  - ARTERIOSCLEROSIS CORONARY ARTERY [None]
  - CARDIAC FAILURE CONGESTIVE [None]
  - DRUG INEFFECTIVE [None]
  - HYPERLIPIDAEMIA [None]
  - HYPERTENSION [None]
  - INFLUENZA [None]
  - LYMPHOID TISSUE HYPERPLASIA [None]
  - MYOCARDIAL INFARCTION [None]
  - PERICARDITIS [None]
  - THROMBOSIS [None]
